FAERS Safety Report 11309089 (Version 6)
Quarter: 2015Q4

REPORT INFORMATION
  Report Type: Report from Study
  Country: CA (occurrence: CA)
  Receive Date: 20150724
  Receipt Date: 20151006
  Transmission Date: 20160304
  Serious: Yes (Hospitalization)
  Sender: FDA-Public Use
  Company Number: CA-SA-2015SA092536

PATIENT
  Age: 23 Year
  Sex: Female

DRUGS (20)
  1. LEMTRADA [Suspect]
     Active Substance: ALEMTUZUMAB
     Indication: RELAPSING-REMITTING MULTIPLE SCLEROSIS
     Route: 041
     Dates: start: 20150629, end: 20150629
  2. TYLENOL [Concomitant]
     Active Substance: ACETAMINOPHEN
     Indication: PROPHYLAXIS
     Dosage: FREQUENCY: Q4H PRN
     Route: 048
     Dates: start: 20150622, end: 20150629
  3. TYLENOL [Concomitant]
     Active Substance: ACETAMINOPHEN
     Indication: PREMEDICATION
     Dosage: X 1; FREQUENCY: Q4- 6 HR PRN
     Route: 042
  4. TYLENOL [Concomitant]
     Active Substance: ACETAMINOPHEN
     Indication: ANALGESIC THERAPY
     Dosage: X 1; FREQUENCY: Q4- 6 HR PRN
     Route: 042
  5. SOLU-MEDROL [Concomitant]
     Active Substance: METHYLPREDNISOLONE SODIUM SUCCINATE
     Indication: PREMEDICATION
     Dosage: ODX3 DAYS; LOT/BATCH NUMBER: 3030114
     Route: 042
     Dates: start: 20150622, end: 20150625
  6. BENADRYL [Concomitant]
     Active Substance: DIPHENHYDRAMINE HYDROCHLORIDE
     Indication: PREMEDICATION
     Dosage: OD X 5 DAYS; LOT/BATCH NUMBER: CW6936
     Route: 042
     Dates: start: 20150622, end: 20150626
  7. TYLENOL [Concomitant]
     Active Substance: ACETAMINOPHEN
     Indication: PREMEDICATION
     Dosage: FREQUENCY: Q4H PRN
     Route: 048
     Dates: start: 20150622, end: 20150629
  8. TYLENOL [Concomitant]
     Active Substance: ACETAMINOPHEN
     Indication: ANALGESIC THERAPY
     Dosage: FREQUENCY: Q4H PRN
     Route: 048
     Dates: start: 20150622, end: 20150629
  9. VITAMIN B12 [Concomitant]
     Active Substance: CYANOCOBALAMIN
     Indication: SUPPLEMENTATION THERAPY
     Route: 048
  10. MAGNESIUM [Concomitant]
     Active Substance: MAGNESIUM
     Indication: SUPPLEMENTATION THERAPY
     Route: 048
  11. METHYLPREDNISOLONE. [Concomitant]
     Active Substance: METHYLPREDNISOLONE
     Indication: PREMEDICATION
     Dosage: X 1
     Route: 042
  12. LEMTRADA [Suspect]
     Active Substance: ALEMTUZUMAB
     Indication: RELAPSING-REMITTING MULTIPLE SCLEROSIS
     Route: 041
     Dates: start: 20150622, end: 20150625
  13. ACYCLOVIR. [Concomitant]
     Active Substance: ACYCLOVIR
     Indication: PREMEDICATION
     Dosage: X 30 DAYS
     Route: 048
     Dates: start: 20150622
  14. BENADRYL [Concomitant]
     Active Substance: DIPHENHYDRAMINE HYDROCHLORIDE
     Indication: PREMEDICATION
     Dosage: Q4-6 HR PRN
     Route: 042
  15. GRAVOL [Concomitant]
     Active Substance: DIMENHYDRINATE
     Indication: PREMEDICATION
     Dosage: X 1 Q4-6 HR PRN
     Route: 042
  16. ACYCLOVIR. [Concomitant]
     Active Substance: ACYCLOVIR
     Indication: ANTIVIRAL TREATMENT
     Dosage: X 30 DAYS
     Route: 048
     Dates: start: 20150622
  17. TYLENOL [Concomitant]
     Active Substance: ACETAMINOPHEN
     Indication: PROPHYLAXIS
     Dosage: X 1; FREQUENCY: Q4- 6 HR PRN
     Route: 042
  18. TRICYCLEN [Concomitant]
     Active Substance: ETHINYL ESTRADIOL\NORGESTIMATE
     Indication: ORAL CONTRACEPTION
     Route: 048
  19. VITAMIN D [Concomitant]
     Active Substance: CHOLECALCIFEROL
     Indication: SUPPLEMENTATION THERAPY
     Route: 048
  20. GRAVOL [Concomitant]
     Active Substance: DIMENHYDRINATE
     Indication: PREMEDICATION
     Dosage: OD X 5 DAYS; LOT/BATCH NUMBER: EM3697
     Route: 042
     Dates: start: 20150622, end: 20150629

REACTIONS (16)
  - Heart rate increased [Unknown]
  - Pneumonia necrotising [Recovered/Resolved]
  - Chills [Recovered/Resolved]
  - Chest discomfort [Recovering/Resolving]
  - Headache [Recovered/Resolved]
  - Cough [Unknown]
  - Chest pain [Recovering/Resolving]
  - Pyrexia [Recovered/Resolved]
  - Rash erythematous [Recovered/Resolved]
  - Pneumonia legionella [Recovered/Resolved]
  - Pyrexia [Recovered/Resolved]
  - Lung disorder [Recovered/Resolved]
  - Dyspnoea [Recovering/Resolving]
  - Dyspnoea [Not Recovered/Not Resolved]
  - Anxiety [Unknown]
  - Hot flush [Not Recovered/Not Resolved]

NARRATIVE: CASE EVENT DATE: 2015
